FAERS Safety Report 8362053-8 (Version None)
Quarter: 2012Q2

REPORT INFORMATION
  Report Type: 
  Country: None (occurrence: None)
  Receive Date: 20120515
  Receipt Date: 20120509
  Transmission Date: 20120825
  Serious: Yes (Death)
  Sender: FDA-Public Use
  Company Number: FR-ROCHE-1064914

PATIENT
  Sex: Male

DRUGS (1)
  1. ISOTRETINOIN [Suspect]
     Indication: ACNE
     Dosage: 0.5 MG/KG DAILY
     Dates: start: 19910101

REACTIONS (4)
  - COMPLETED SUICIDE [None]
  - DRY EYE [None]
  - HYPERTRICHOSIS [None]
  - LIP DRY [None]
